FAERS Safety Report 4844040-7 (Version None)
Quarter: 2005Q4

REPORT INFORMATION
  Report Type: 
  Country: None (occurrence: None)
  Receive Date: 20051202
  Receipt Date: 20030617
  Transmission Date: 20060501
  Serious: Yes (Other)
  Sender: FDA-Public Use
  Company Number: AU-ROCHE-340302

PATIENT
  Sex: Female
  Weight: 79 kg

DRUGS (3)
  1. XENICAL [Suspect]
     Indication: DRUG USE FOR UNKNOWN INDICATION
     Route: 048
  2. ALPRIM [Concomitant]
  3. CALTRATE [Concomitant]

REACTIONS (2)
  - GALLBLADDER DISORDER [None]
  - HEPATIC STEATOSIS [None]
